FAERS Safety Report 7216142-1 (Version None)
Quarter: 2011Q1

REPORT INFORMATION
  Report Type: 
  Country: None (occurrence: None)
  Receive Date: 20110107
  Receipt Date: 20101224
  Transmission Date: 20110831
  Serious: No
  Sender: FDA-Public Use
  Company Number: US-B.I. PHARMACEUTICALS,INC./RIDGEFIELD-2011-BP-00130BP

PATIENT
  Sex: Male

DRUGS (9)
  1. PRADAXA [Suspect]
     Indication: ATRIAL FIBRILLATION
     Dosage: 300 MG
     Route: 048
     Dates: start: 20101210
  2. CELEBREX [Concomitant]
     Indication: ARTHRITIS
     Dosage: 400 MG
     Route: 048
  3. ASPIRIN [Concomitant]
     Indication: CARDIAC DISORDER
     Dosage: 81 MG
     Route: 048
     Dates: start: 20000101
  4. FOLBIC [Concomitant]
     Indication: BLOOD DISORDER
     Route: 048
     Dates: start: 20100101
  5. OXYCONTIN [Concomitant]
     Indication: ARTHRALGIA
     Dosage: 40 MG
     Route: 048
     Dates: start: 20090501
  6. EXFORGE [Concomitant]
     Indication: HYPERTENSION
     Dosage: 10-320
     Route: 048
     Dates: start: 20070101
  7. MAGNESIUM OXIDE [Concomitant]
     Indication: CARDIAC DISORDER
     Dosage: 400 MG
     Route: 048
  8. NIASPAN [Concomitant]
     Indication: BLOOD DISORDER
     Dosage: 1000 MG
     Route: 048
     Dates: start: 20100101
  9. PLAVIX [Concomitant]
     Indication: CARDIAC DISORDER
     Dosage: 75 MG
     Route: 048
     Dates: start: 20090301

REACTIONS (2)
  - FEELING HOT [None]
  - DIZZINESS [None]
